FAERS Safety Report 10175063 (Version 4)
Quarter: 2014Q2

REPORT INFORMATION
  Report Type: Spontaneous
  Country: JP (occurrence: JP)
  Receive Date: 20140515
  Receipt Date: 20140613
  Transmission Date: 20141212
  Serious: Yes (Hospitalization)
  Sender: FDA-Public Use
  Company Number: JP-ROCHE-1394462

PATIENT
  Age: 83 Year
  Sex: Female

DRUGS (8)
  1. BONVIVA [Suspect]
     Indication: OSTEOPOROSIS
     Route: 042
     Dates: start: 20140310, end: 20140310
  2. MICARDIS [Concomitant]
     Indication: HYPERTENSION
     Route: 048
     Dates: start: 201109
  3. FERROMIA [Concomitant]
     Indication: IRON DEFICIENCY ANAEMIA
     Route: 048
     Dates: start: 201109
  4. CELECOX [Concomitant]
     Indication: ARTHRALGIA
     Route: 048
     Dates: start: 20140224, end: 201404
  5. REBAMIPIDE [Concomitant]
     Route: 048
     Dates: start: 20140224, end: 201404
  6. VOLTAREN [Concomitant]
     Dosage: DOSAGE IS UNCERTAIN.
     Route: 054
  7. RINDERON [Concomitant]
     Indication: ARTHRALGIA
     Route: 014
     Dates: start: 20140212
  8. CARBOCAIN [Concomitant]
     Indication: ARTHRALGIA
     Route: 014

REACTIONS (3)
  - Peripheral swelling [Recovering/Resolving]
  - Muscular weakness [Recovering/Resolving]
  - Rheumatoid arthritis [Recovering/Resolving]
